FAERS Safety Report 7469136-5 (Version None)
Quarter: 2011Q2

REPORT INFORMATION
  Report Type: 
  Country: None (occurrence: None)
  Receive Date: 20110510
  Receipt Date: 20110406
  Transmission Date: 20111010
  Serious: Yes (Hospitalization, Other)
  Sender: FDA-Public Use
  Company Number: US-BAYER-201028723NA

PATIENT
  Age: 23 Year
  Sex: Female
  Weight: 120 kg

DRUGS (5)
  1. ALLERGY MEDICATION [Concomitant]
  2. YAZ [Suspect]
     Indication: CONTRACEPTION
     Dosage: UNK
     Route: 048
     Dates: start: 20081219, end: 20100321
  3. MULTI-VITAMIN [Concomitant]
  4. ROLAIDS MULTISYMPTOMS [Concomitant]
  5. DIETARY SUPPLEMENT [Concomitant]

REACTIONS (7)
  - PANCREATITIS [None]
  - GALLBLADDER INJURY [None]
  - CHOLECYSTITIS [None]
  - DIARRHOEA [None]
  - VOMITING [None]
  - NAUSEA [None]
  - ABDOMINAL PAIN UPPER [None]
